FAERS Safety Report 18553761 (Version 2)
Quarter: 2020Q4

REPORT INFORMATION
  Report Type: Report from Study
  Country: CH (occurrence: CH)
  Receive Date: 20201127
  Receipt Date: 20201201
  Transmission Date: 20210114
  Serious: Yes (Death, Other)
  Sender: FDA-Public Use
  Company Number: CH-TAKEDA-2020TUS053574

PATIENT
  Sex: Female

DRUGS (1)
  1. MOBOCERTINIB. [Suspect]
     Active Substance: MOBOCERTINIB
     Indication: NON-SMALL CELL LUNG CANCER
     Dosage: UNK
     Route: 065
     Dates: start: 20200903, end: 20201004

REACTIONS (1)
  - Non-small cell lung cancer [Fatal]
